FAERS Safety Report 12826728 (Version 1)
Quarter: 2016Q4

REPORT INFORMATION
  Report Type: Spontaneous
  Country: US (occurrence: US)
  Receive Date: 20161007
  Receipt Date: 20161007
  Transmission Date: 20170207
  Serious: No
  Sender: FDA-Public Use
  Company Number: US-WATSON-2016-09386

PATIENT
  Sex: Female

DRUGS (4)
  1. MIDODRINE [Concomitant]
     Active Substance: MIDODRINE
     Indication: HYPOTENSION
     Dosage: 10 MG, IN THE MORNING
     Route: 048
  2. FENTANYL-75 (WATSON LABORATORIES) [Suspect]
     Active Substance: FENTANYL
     Indication: BACK PAIN
     Dosage: 2 - 75 MCG, APPLIED EVERY 48 HOURS
     Route: 062
     Dates: start: 2000
  3. OXYCODONE [Concomitant]
     Active Substance: OXYCODONE
     Indication: BREAKTHROUGH PAIN
     Dosage: 30 MG, EVERY 6 HOURS PRN
     Route: 048
  4. LEVOTHYROXINE. [Concomitant]
     Active Substance: LEVOTHYROXINE
     Indication: HYPOTHYROIDISM
     Dosage: UNK, UNKNOWN
     Route: 048

REACTIONS (1)
  - Drug effect decreased [Unknown]
